FAERS Safety Report 4279652-5 (Version None)
Quarter: 2004Q1

REPORT INFORMATION
  Report Type: 
  Country: None (occurrence: None)
  Receive Date: 20040123
  Receipt Date: 20040113
  Transmission Date: 20041129
  Serious: Yes (Other)
  Sender: FDA-Public Use
  Company Number: US-JNJFOC-20030905775

PATIENT
  Age: 71 Year
  Sex: Female
  Weight: 83.4619 kg

DRUGS (15)
  1. REMICADE [Suspect]
     Indication: CROHN'S DISEASE
     Dosage: 1 IN 1 DAY, INTRAVENOUS
     Route: 042
     Dates: start: 20030812
  2. METHOTREXATE [Concomitant]
  3. PREDNISONE [Concomitant]
  4. MIACALCIN [Concomitant]
  5. AMITRIPTYLINE HCL [Concomitant]
  6. ALPHAGAN [Concomitant]
  7. ELIDEL (OTHER DERMATOLOGICAL PREPARATIONS) [Concomitant]
  8. FLUOCINONIDE (FLUCINONIDE) [Concomitant]
  9. ENDOCET (OXYCOCET) [Concomitant]
  10. DN100 (PROPACET) [Concomitant]
  11. ZOLOFT [Concomitant]
  12. XANAX [Concomitant]
  13. FLEXERIL [Concomitant]
  14. XALATAN [Concomitant]
  15. CARMOL(UREA) [Concomitant]

REACTIONS (8)
  - BACK PAIN [None]
  - CONDITION AGGRAVATED [None]
  - CROHN'S DISEASE [None]
  - HYPERHIDROSIS [None]
  - PAIN IN JAW [None]
  - PARALYSIS [None]
  - TRISMUS [None]
  - VISUAL ACUITY REDUCED [None]
